FAERS Safety Report 8391736-9 (Version None)
Quarter: 2012Q2

REPORT INFORMATION
  Report Type: 
  Country: None (occurrence: None)
  Receive Date: 20120529
  Receipt Date: 20120523
  Transmission Date: 20120825
  Serious: Yes (Hospitalization)
  Sender: FDA-Public Use
  Company Number: US-PFIZER INC-2012055942

PATIENT
  Sex: Female

DRUGS (9)
  1. PREMARIN [Suspect]
     Dosage: TWO TO THREE TIMES A WEEK
     Route: 061
     Dates: start: 20111001
  2. LEVOTHYROXINE [Concomitant]
  3. PRILOSEC [Concomitant]
  4. CALCIUM [Concomitant]
  5. MAGNESIUM [Concomitant]
  6. MORPHINE SULFATE [Suspect]
     Dosage: UNK
  7. VITAMIN D [Concomitant]
  8. VAGIFEM [Concomitant]
  9. PRAVASTATIN [Concomitant]

REACTIONS (2)
  - SYNCOPE [None]
  - VAGUS NERVE DISORDER [None]
